FAERS Safety Report 5956230-0 (Version None)
Quarter: 2008Q4

REPORT INFORMATION
  Report Type: 
  Country: None (occurrence: None)
  Receive Date: 20081118
  Receipt Date: 20081113
  Transmission Date: 20090506
  Serious: Yes (Hospitalization)
  Sender: FDA-Public Use
  Company Number: US-BIOGENIDEC-2008BI024653

PATIENT
  Sex: Female

DRUGS (2)
  1. AVONEX [Suspect]
     Indication: MULTIPLE SCLEROSIS
     Route: 030
     Dates: start: 20050401, end: 20070101
  2. AVONEX [Suspect]
     Route: 030
     Dates: start: 20070430, end: 20071101

REACTIONS (2)
  - INFECTIOUS MONONUCLEOSIS [None]
  - PNEUMONIA [None]
